FAERS Safety Report 7821042-X (Version None)
Quarter: 2011Q4

REPORT INFORMATION
  Report Type: 
  Country: None (occurrence: None)
  Receive Date: 20111018
  Receipt Date: 20101216
  Transmission Date: 20120403
  Serious: No
  Sender: FDA-Public Use
  Company Number: US-ASTRAZENECA-2010SE57198

PATIENT
  Age: 59 Year
  Sex: Male
  Weight: 52.2 kg

DRUGS (4)
  1. NEXIUM [Suspect]
     Indication: GASTROOESOPHAGEAL REFLUX DISEASE
     Route: 048
     Dates: start: 20050101, end: 20101130
  2. SYMBICORT [Suspect]
     Indication: CHRONIC OBSTRUCTIVE PULMONARY DISEASE
     Dosage: 160/4.5 MCG DAILY
     Route: 055
     Dates: start: 20080101, end: 20101130
  3. SYMBICORT [Suspect]
     Route: 055
     Dates: start: 20101202
  4. NEXIUM [Suspect]
     Route: 048
     Dates: start: 20101202

REACTIONS (4)
  - INFLUENZA [None]
  - MALAISE [None]
  - DRUG DOSE OMISSION [None]
  - DYSPNOEA [None]
